FAERS Safety Report 24385088 (Version 1)
Quarter: 2024Q4

REPORT INFORMATION
  Report Type: Spontaneous
  Country: FR (occurrence: FR)
  Receive Date: 20241001
  Receipt Date: 20241001
  Transmission Date: 20250115
  Serious: Yes (Hospitalization)
  Sender: MYLAN
  Company Number: None

PATIENT
  Age: 62 Year
  Sex: Male
  Weight: 67 kg

DRUGS (4)
  1. OLANZAPINE [Suspect]
     Active Substance: OLANZAPINE
     Indication: Product used for unknown indication
     Dosage: 20 DOSAGE FORM, TOTAL
     Route: 048
     Dates: start: 20240814, end: 20240814
  2. GABAPENTIN [Suspect]
     Active Substance: GABAPENTIN
     Indication: Product used for unknown indication
     Dosage: 20 DOSAGE FORM, TOTAL (300 MG X20 TABS)
     Route: 048
     Dates: start: 20240814, end: 20240814
  3. MORPHINE [Suspect]
     Active Substance: MORPHINE
     Indication: Product used for unknown indication
     Dosage: 20 DOSAGE FORM, TOTAL (10 MG X20 TAB)
     Route: 048
     Dates: start: 20240814, end: 20240814
  4. DIAZEPAM [Suspect]
     Active Substance: DIAZEPAM
     Indication: Product used for unknown indication
     Dosage: 20 DOSAGE FORM, TOTAL (10 MG X20 TAB)
     Route: 048
     Dates: start: 20240814, end: 20240814

REACTIONS (4)
  - Bradypnoea [Recovered/Resolved]
  - Poisoning deliberate [Recovered/Resolved]
  - Miosis [Recovered/Resolved]
  - Coma [Recovered/Resolved]

NARRATIVE: CASE EVENT DATE: 20240814
